FAERS Safety Report 19014354 (Version 1)
Quarter: 2021Q1

REPORT INFORMATION
  Report Type: Spontaneous
  Country: CO (occurrence: CO)
  Receive Date: 20210316
  Receipt Date: 20210316
  Transmission Date: 20210420
  Serious: Yes (Death, Other)
  Sender: FDA-Public Use
  Company Number: CO-ALLERGAN-2110899US

PATIENT
  Sex: Female

DRUGS (1)
  1. CEFTAZIDIME;AVIBACTAM ? BP [Suspect]
     Active Substance: AVIBACTAM SODIUM\CEFTAZIDIME
     Indication: SKIN BACTERIAL INFECTION
     Dosage: UNK

REACTIONS (3)
  - Death [Fatal]
  - Drug effective for unapproved indication [Unknown]
  - Off label use [Unknown]
